FAERS Safety Report 10177760 (Version 1)
Quarter: 2014Q2

REPORT INFORMATION
  Report Type: Spontaneous
  Country: US (occurrence: US)
  Receive Date: 20140516
  Receipt Date: 20140516
  Transmission Date: 20141212
  Serious: No
  Sender: FDA-Public Use
  Company Number: US-SANOFI-AVENTIS-2013SA065187

PATIENT
  Age: 53 Year
  Sex: Male

DRUGS (9)
  1. APIDRA SOLOSTAR [Suspect]
     Route: 058
  2. SOLOSTAR [Suspect]
  3. LANTUS [Suspect]
     Indication: DIABETES MELLITUS
     Dosage: DOSE:28 UNIT(S)
  4. ASPIRIN [Concomitant]
     Indication: ANTICOAGULANT THERAPY
  5. DILTIAZEM [Concomitant]
     Indication: BLOOD PRESSURE DECREASED
  6. DILTIAZEM [Concomitant]
     Indication: CHEST PAIN
  7. NEXIUM [Concomitant]
     Indication: GASTROOESOPHAGEAL REFLUX DISEASE
  8. CRESTOR [Concomitant]
     Indication: BLOOD CHOLESTEROL
  9. METFORMIN [Concomitant]

REACTIONS (1)
  - Hypoacusis [Unknown]
